FAERS Safety Report 19083804 (Version 3)
Quarter: 2022Q1

REPORT INFORMATION
  Report Type: Report from Study
  Country: GB (occurrence: GB)
  Receive Date: 20210401
  Receipt Date: 20220111
  Transmission Date: 20220423
  Serious: Yes (Hospitalization)
  Sender: FDA-Public Use
  Company Number: GB-KARYOPHARM-2021KPT000155

PATIENT
  Age: 77 Year
  Sex: Male

DRUGS (3)
  1. SELINEXOR [Suspect]
     Active Substance: SELINEXOR
     Indication: Plasma cell myeloma
     Dosage: 100 MG, WEEKLY
     Route: 048
     Dates: start: 20201029
  2. CYCLOPHOSPHAMIDE [Suspect]
     Active Substance: CYCLOPHOSPHAMIDE
     Indication: Plasma cell myeloma
     Dosage: 50 MG, QD
     Route: 048
     Dates: start: 20201029
  3. PREDNISOLONE [Suspect]
     Active Substance: PREDNISOLONE
     Indication: Plasma cell myeloma
     Dosage: 30 MG, QOD
     Route: 048
     Dates: start: 20201029

REACTIONS (1)
  - Dehydration [Recovered/Resolved]

NARRATIVE: CASE EVENT DATE: 20210111
